FAERS Safety Report 5024174-7 (Version None)
Quarter: 2006Q2

REPORT INFORMATION
  Report Type: 
  Country: None (occurrence: None)
  Receive Date: 20060607
  Receipt Date: 20060603
  Transmission Date: 20061013
  Serious: Yes (Life-Threatening, Hospitalization)
  Sender: FDA-Public Use
  Company Number: 222586

PATIENT
  Age: 78 Year
  Sex: Male

DRUGS (10)
  1. GRTPA (ALTEPLASE) PWDR + SOLVENT, INFUSION SOLN [Suspect]
     Indication: CEREBRAL ARTERY EMBOLISM
     Dosage: 30 MG, SINGLE, INTRAVENOUS
     Route: 042
     Dates: start: 20060124, end: 20060124
  2. FAMOTIDINE [Concomitant]
  3. VASOLAN (ISOXSUPRINE HYDROCHLORIDE) [Concomitant]
  4. DIGOXIN [Concomitant]
  5. PERDIPINE (NICARDIPINE HYDROCHLORIDE) [Concomitant]
  6. ALEVIATIN (PHENYTOIN SODIUM) [Concomitant]
  7. HUMULIN R [Concomitant]
  8. ATENOLOL [Concomitant]
  9. ATELEC (CILNIDIPINE) [Concomitant]
  10. BICARBONATE (SODIUM BICARBONATE) [Concomitant]

REACTIONS (3)
  - DEPRESSED LEVEL OF CONSCIOUSNESS [None]
  - HAEMORRHAGIC CEREBRAL INFARCTION [None]
  - PNEUMONIA [None]
